FAERS Safety Report 9372845 (Version 1)
Quarter: 2013Q2

REPORT INFORMATION
  Report Type: Spontaneous
  Country: GB (occurrence: GB)
  Receive Date: 20130627
  Receipt Date: 20130627
  Transmission Date: 20140414
  Serious: Yes (Hospitalization, Other)
  Sender: FDA-Public Use
  Company Number: GB-JNJFOC-20130615782

PATIENT
  Age: 94 Year
  Sex: Female
  Weight: 63 kg

DRUGS (8)
  1. XARELTO [Suspect]
     Indication: ATRIAL FIBRILLATION
     Route: 048
     Dates: start: 20121127, end: 20130507
  2. XARELTO [Suspect]
     Indication: CEREBROVASCULAR ACCIDENT PROPHYLAXIS
     Route: 048
     Dates: start: 20121127, end: 20130507
  3. BISOPROLOL [Concomitant]
     Indication: ATRIAL FIBRILLATION
     Route: 048
     Dates: start: 20121127
  4. LANSOPRAZOLE [Concomitant]
     Indication: DIVERTICULUM
     Route: 048
     Dates: start: 2006
  5. CO-CODAMOL [Concomitant]
     Indication: PAIN
     Route: 065
     Dates: start: 2005
  6. FUROSEMIDE [Concomitant]
     Indication: JOINT SWELLING
     Route: 048
     Dates: start: 20130403
  7. LEVOTHYROXINE [Concomitant]
     Indication: HYPOTHYROIDISM
     Route: 048
     Dates: start: 1995
  8. CITALOPRAM [Concomitant]
     Indication: DEPRESSION
     Route: 048
     Dates: start: 2005

REACTIONS (2)
  - Diverticulitis [Recovered/Resolved]
  - Gastrointestinal haemorrhage [Recovered/Resolved]
